FAERS Safety Report 9242052 (Version 1)
Quarter: 2013Q2

REPORT INFORMATION
  Report Type: Spontaneous
  Country: US (occurrence: US)
  Receive Date: 20130419
  Receipt Date: 20130419
  Transmission Date: 20140414
  Serious: Yes (Life-Threatening, Hospitalization, Other)
  Sender: FDA-Public Use
  Company Number: US-ROXANE LABORATORIES, INC.-2013-RO-00492RO

PATIENT
  Age: 59 Year
  Sex: Male

DRUGS (4)
  1. LITHIUM CARBONATE [Suspect]
     Indication: BIPOLAR DISORDER
     Dosage: 900 MG
  2. VALSARTAN [Suspect]
     Indication: HYPERTENSION
     Dosage: 320 MG
  3. FLUPHENAZINE DECANOATE [Suspect]
     Indication: BIPOLAR DISORDER
  4. LISINOPRIL [Suspect]
     Indication: HYPERTENSION
     Dosage: 20 MG

REACTIONS (4)
  - Neuroleptic malignant syndrome [Recovered/Resolved]
  - Toxicity to various agents [Recovered/Resolved]
  - Renal impairment [Recovered/Resolved]
  - Dehydration [Recovered/Resolved]
